FAERS Safety Report 5622921-4 (Version None)
Quarter: 2008Q1

REPORT INFORMATION
  Report Type: 
  Country: None (occurrence: None)
  Receive Date: 20080212
  Receipt Date: 20080207
  Transmission Date: 20080703
  Serious: Yes (Other)
  Sender: FDA-Public Use
  Company Number: PHEH2007US09574

PATIENT
  Age: 73 Year
  Sex: Female

DRUGS (1)
  1. ENABLEX [Suspect]
     Indication: HYPERTONIC BLADDER
     Dosage: 7.5 MG, QD
     Dates: start: 20070301, end: 20070615

REACTIONS (4)
  - CHOLECYSTECTOMY [None]
  - CHOLECYSTITIS [None]
  - FLATULENCE [None]
  - MUSCULOSKELETAL PAIN [None]
